FAERS Safety Report 11653308 (Version 1)
Quarter: 2015Q4

REPORT INFORMATION
  Report Type: Spontaneous
  Country: US (occurrence: US)
  Receive Date: 20151022
  Receipt Date: 20151022
  Transmission Date: 20160304
  Serious: No
  Sender: FDA-Public Use
  Company Number: GXBR2015US001983

PATIENT
  Sex: Female
  Weight: 71.2 kg

DRUGS (2)
  1. CLOBETASOL PROPIONATE. [Suspect]
     Active Substance: CLOBETASOL PROPIONATE
     Indication: LICHEN PLANUS
     Dosage: UNK DF, 2 TO 3 TIMES A WEEK
     Route: 061
     Dates: end: 20150827
  2. CLOTRIMAZOLE. [Concomitant]
     Active Substance: CLOTRIMAZOLE
     Indication: LICHEN PLANUS
     Dosage: 10 MG, UNK
     Route: 060
     Dates: end: 20150827

REACTIONS (1)
  - Expired product administered [Unknown]
